FAERS Safety Report 6948317-0 (Version None)
Quarter: 2010Q3

REPORT INFORMATION
  Report Type: 
  Country: None (occurrence: None)
  Receive Date: 20100828
  Receipt Date: 20091028
  Transmission Date: 20110219
  Serious: No
  Sender: FDA-Public Use
  Company Number: US-ABBOTT-09P-163-0604549-00

PATIENT
  Sex: Male
  Weight: 73.548 kg

DRUGS (9)
  1. NIASPAN [Suspect]
     Indication: DYSLIPIDAEMIA
     Route: 048
     Dates: start: 20090901, end: 20091001
  2. NIASPAN [Suspect]
     Dates: start: 20091001
  3. PLAVIX [Concomitant]
     Indication: STENT PLACEMENT
     Route: 048
  4. VYTORIN [Concomitant]
     Indication: BLOOD CHOLESTEROL INCREASED
     Dosage: 40/10
     Route: 048
  5. VYTORIN [Concomitant]
     Indication: HYPERTENSION
  6. ALTACE [Concomitant]
     Indication: HYPERTENSION
     Route: 048
  7. MULTI-VITAMIN [Concomitant]
     Indication: VITAMIN SUPPLEMENTATION
     Route: 048
  8. HUMULIN N [Concomitant]
     Indication: DIABETES MELLITUS
     Dosage: SLIDING SCALE
     Route: 058
  9. HYZAAR [Concomitant]
     Indication: HYPERTENSION
     Dosage: 100/25
     Route: 048

REACTIONS (2)
  - FEELING HOT [None]
  - PRURITUS [None]
